FAERS Safety Report 8677855 (Version 15)
Quarter: 2014Q3

REPORT INFORMATION
  Report Type: Report from Study
  Country: AR (occurrence: AR)
  Receive Date: 20120723
  Receipt Date: 20140704
  Transmission Date: 20150326
  Serious: Yes (Hospitalization, Other)
  Sender: FDA-Public Use
  Company Number: PHHY2012AR056987

PATIENT
  Age: 43 Year
  Sex: Male

DRUGS (12)
  1. DIPHENHYDRAMINE [Concomitant]
     Active Substance: DIPHENHYDRAMINE
  2. DIAZEPAM. [Concomitant]
     Active Substance: DIAZEPAM
     Dosage: UNK UKN, UNK
  3. ENALAPRIL [Concomitant]
     Active Substance: ENALAPRIL
     Dosage: UNK UKN, UNK
  4. OMEPRAZOLE. [Concomitant]
     Active Substance: OMEPRAZOLE
     Dosage: UNK UKN, UNK
  5. LAPENAX [Suspect]
     Active Substance: CLOZAPINE
     Indication: SCHIZOPHRENIA, RESIDUAL TYPE
     Dosage: 400 MG, QD
     Route: 048
  6. VALPROIC ACID. [Concomitant]
     Active Substance: VALPROIC ACID
     Dosage: UNK UKN, UNK
  7. RISPERIDONE. [Concomitant]
     Active Substance: RISPERIDONE
     Dosage: UNK UKN, UNK
  8. BENZODIAZEPINES [Concomitant]
     Active Substance: BENZODIAZEPINE
     Dosage: UNK UKN, UNK
  9. ZOLPIDEM [Concomitant]
     Active Substance: ZOLPIDEM\ZOLPIDEM TARTRATE
     Dosage: UNK UKN, UNK
  10. CIPROVIT CALCICO [Concomitant]
     Dosage: UNK
  11. CLOTIAPINE [Concomitant]
     Active Substance: CLOTHIAPINE
     Dosage: UNK
  12. DIFENILHIDANTOINA//PHENYTOIN [Concomitant]
     Dosage: UNK UKN, UNK

REACTIONS (8)
  - Bronchial disorder [Not Recovered/Not Resolved]
  - Eczema infected [Not Recovered/Not Resolved]
  - Neutrophil count increased [Unknown]
  - Urinary tract infection [Recovering/Resolving]
  - Infection [Not Recovered/Not Resolved]
  - Splenomegaly [Unknown]
  - Hepatomegaly [Unknown]
  - Leukocytosis [Not Recovered/Not Resolved]

NARRATIVE: CASE EVENT DATE: 20120514
